FAERS Safety Report 5541581-4 (Version None)
Quarter: 2007Q4

REPORT INFORMATION
  Report Type: 
  Country: None (occurrence: None)
  Receive Date: 20071210
  Receipt Date: 20071128
  Transmission Date: 20080405
  Serious: Yes (Hospitalization)
  Sender: FDA-Public Use
  Company Number: PHHY2007AR00647

PATIENT
  Age: 61 Year
  Sex: Female

DRUGS (1)
  1. DIOVAN TRIPLE [Suspect]
     Dosage: 160 MG, QD
     Dates: start: 20070703

REACTIONS (1)
  - CATARACT OPERATION [None]
